FAERS Safety Report 20692151 (Version 5)
Quarter: 2022Q3

REPORT INFORMATION
  Report Type: Report from Study
  Country: US (occurrence: US)
  Receive Date: 20220409
  Receipt Date: 20220702
  Transmission Date: 20221027
  Serious: Yes (Hospitalization, Other)
  Sender: FDA-Public Use
  Company Number: US-NOVARTISPH-NVSC2022US051262

PATIENT
  Age: 52 Year
  Sex: Female

DRUGS (3)
  1. ENTRESTO [Suspect]
     Active Substance: SACUBITRIL\VALSARTAN
     Indication: Product used for unknown indication
     Dosage: 1 DOSAGE FORM, BID (49/51 MG)
     Route: 065
     Dates: start: 202010
  2. ENTRESTO [Suspect]
     Active Substance: SACUBITRIL\VALSARTAN
     Dosage: 1 DOSAGE FORM, BID (97/103 MG)
     Route: 048
  3. ENTRESTO [Suspect]
     Active Substance: SACUBITRIL\VALSARTAN
     Dosage: 1 MG, BID (97/103 MG)
     Route: 048

REACTIONS (6)
  - Colon cancer stage III [Unknown]
  - Cardiac failure [Unknown]
  - Neuropathy peripheral [Recovering/Resolving]
  - Hypoaesthesia [Unknown]
  - Hand fracture [Unknown]
  - Fall [Unknown]

NARRATIVE: CASE EVENT DATE: 20201001
